FAERS Safety Report 8002678-2 (Version None)
Quarter: 2011Q4

REPORT INFORMATION
  Report Type: 
  Country: None (occurrence: None)
  Receive Date: 20111220
  Receipt Date: 20111209
  Transmission Date: 20120403
  Serious: Yes (Disabling, Other)
  Sender: FDA-Public Use
  Company Number: OSCN-NO-1112S-0238

PATIENT
  Age: 46 Year
  Sex: Female

DRUGS (3)
  1. BARIUM SULFATE SUPENSION (VOLUMEN)(BARIUM SULFATE) [Suspect]
     Dates: start: 20111128, end: 20111128
  2. OMNISCAN [Suspect]
     Indication: CROHN'S DISEASE
     Dosage: 18 ML, SINGLE DOSE, INTRAVENOUS
     Route: 042
     Dates: start: 20111128, end: 20111128
  3. HYOSCINE HBR HYT [Suspect]
     Dates: start: 20111128, end: 20111128

REACTIONS (3)
  - DIARRHOEA [None]
  - RECTAL HAEMORRHAGE [None]
  - DERMATITIS ALLERGIC [None]
